FAERS Safety Report 5507088-5 (Version None)
Quarter: 2007Q4

REPORT INFORMATION
  Report Type: 
  Country: None (occurrence: None)
  Receive Date: 20071105
  Receipt Date: 20071030
  Transmission Date: 20080405
  Serious: No
  Sender: FDA-Public Use
  Company Number: JP-MERCK-0710USA05718

PATIENT
  Age: 3 Year
  Sex: Female
  Weight: 15 kg

DRUGS (3)
  1. SINGULAIR [Suspect]
     Indication: ASTHMA
     Route: 048
     Dates: start: 20071016, end: 20071016
  2. FLUTIDE [Concomitant]
     Dates: start: 20071016
  3. HOKUNALIN [Concomitant]
     Route: 061
     Dates: start: 20071016

REACTIONS (1)
  - OLIGURIA [None]
